FAERS Safety Report 7363653-4 (Version None)
Quarter: 2011Q1

REPORT INFORMATION
  Report Type: 
  Country: None (occurrence: None)
  Receive Date: 20110321
  Receipt Date: 20110311
  Transmission Date: 20110831
  Serious: Yes (Hospitalization)
  Sender: FDA-Public Use
  Company Number: US-NOVOPROD-324862

PATIENT
  Age: 64 Year
  Sex: Male
  Weight: 84.807 kg

DRUGS (6)
  1. GLIMEPIRIDE [Concomitant]
     Indication: TYPE 2 DIABETES MELLITUS
  2. LISINOPRIL [Suspect]
     Indication: PRODUCT USED FOR UNKNOWN INDICATION
  3. METFORMIN [Concomitant]
     Indication: TYPE 2 DIABETES MELLITUS
  4. AGGRENOX [Concomitant]
     Indication: PRODUCT USED FOR UNKNOWN INDICATION
  5. VICTOZA [Suspect]
     Indication: TYPE 2 DIABETES MELLITUS
     Dosage: 1.2
     Route: 058
     Dates: start: 20110101, end: 20110212
  6. ONGLYZA [Suspect]
     Indication: TYPE 2 DIABETES MELLITUS
     Dosage: UNK
     Dates: start: 20100101, end: 20110215

REACTIONS (3)
  - LIP SWELLING [None]
  - BLOOD GLUCOSE INCREASED [None]
  - URTICARIA [None]
